FAERS Safety Report 4453280-0 (Version None)
Quarter: 2004Q3

REPORT INFORMATION
  Report Type: 
  Country: None (occurrence: None)
  Receive Date: 20040920
  Receipt Date: 20040907
  Transmission Date: 20050211
  Serious: Yes (Hospitalization)
  Sender: FDA-Public Use
  Company Number: NL-MERCK-0409NLD00005

PATIENT
  Age: 73 Year
  Sex: Female

DRUGS (9)
  1. ASPIRIN CALCIUM [Concomitant]
     Route: 048
     Dates: start: 19971201
  2. ATENOLOL [Concomitant]
     Route: 048
     Dates: start: 20040101
  3. DIGOXIN [Concomitant]
     Route: 048
     Dates: start: 19980501
  4. DILTIAZEM HYDROCHLORIDE [Concomitant]
     Route: 048
     Dates: start: 19971201
  5. ESOMEPRAZOLE MAGNESIUM [Concomitant]
     Route: 048
     Dates: start: 20040201
  6. METHIMAZOLE [Concomitant]
     Route: 048
     Dates: start: 19980501
  7. PENICILLIN G BENZHYDRYLAMINE [Concomitant]
     Route: 030
     Dates: start: 19940401
  8. VIOXX [Suspect]
     Route: 048
     Dates: start: 20040401
  9. ZOCOR [Suspect]
     Route: 048
     Dates: end: 20040701

REACTIONS (4)
  - CHROMATURIA [None]
  - FATIGUE [None]
  - MUSCLE CRAMP [None]
  - OEDEMA [None]
